FAERS Safety Report 9602056 (Version 5)
Quarter: 2014Q1

REPORT INFORMATION
  Report Type: Spontaneous
  Country: RU (occurrence: None)
  Receive Date: 20131002
  Receipt Date: 20140102
  Transmission Date: 20141002
  Serious: Yes (Life-Threatening)
  Sender: FDA-Public Use
  Company Number: SYM-2013-11139

PATIENT
  Age: 47 Year
  Sex: Male

DRUGS (6)
  1. FLUOROURACIL [Suspect]
     Indication: COLORECTAL CANCER METASTATIC
     Route: 040
     Dates: start: 20130909, end: 20130909
  2. AFLIBERCEPT [Suspect]
     Indication: COLORECTAL CANCER METASTATIC
     Route: 041
     Dates: start: 20130909, end: 20130909
  3. IRINOTECAN [Suspect]
     Indication: COLORECTAL CANCER METASTATIC
     Route: 041
     Dates: start: 20130909, end: 20130909
  4. LEUCOVORIN (FOLINIC ACID) (SOLUTION FOR INFUSION) (FOLINIC ACID) [Suspect]
     Indication: COLORECTAL CANCER METASTATIC
     Route: 041
     Dates: start: 20130909, end: 20130909
  5. CORTICOSTEROIDS (CORTICOSTEROIDS) [Concomitant]
  6. ATROPIN (ATROPINE SULFATE) [Concomitant]

REACTIONS (2)
  - Pulmonary embolism [None]
  - Toxicity to various agents [None]
